FAERS Safety Report 20208522 (Version 1)
Quarter: 2021Q4

REPORT INFORMATION
  Report Type: Spontaneous
  Country: US (occurrence: US)
  Receive Date: 20211220
  Receipt Date: 20211220
  Transmission Date: 20220303
  Serious: Yes (Other)
  Sender: FDA-Public Use
  Company Number: US-TEVA-2021-US-1989820

PATIENT
  Age: 46 Year
  Sex: Female

DRUGS (12)
  1. DOCETAXEL [Suspect]
     Active Substance: DOCETAXEL
     Indication: Small intestine leiomyosarcoma
     Route: 065
  2. DOCETAXEL [Suspect]
     Active Substance: DOCETAXEL
     Indication: Leiomyosarcoma metastatic
  3. OLARATUMAB [Concomitant]
     Active Substance: OLARATUMAB
     Indication: Small intestine leiomyosarcoma
     Route: 065
  4. OLARATUMAB [Concomitant]
     Active Substance: OLARATUMAB
     Indication: Leiomyosarcoma metastatic
  5. DOXORUBICIN [Concomitant]
     Active Substance: DOXORUBICIN
     Indication: Small intestine leiomyosarcoma
     Route: 065
  6. DOXORUBICIN [Concomitant]
     Active Substance: DOXORUBICIN
     Indication: Leiomyosarcoma metastatic
  7. GEMCITABINE [Concomitant]
     Active Substance: GEMCITABINE
     Indication: Small intestine leiomyosarcoma
     Route: 065
  8. GEMCITABINE [Concomitant]
     Active Substance: GEMCITABINE
     Indication: Leiomyosarcoma metastatic
  9. PAZOPANIB [Concomitant]
     Active Substance: PAZOPANIB
     Indication: Small intestine leiomyosarcoma
     Route: 065
  10. PAZOPANIB [Concomitant]
     Active Substance: PAZOPANIB
     Indication: Leiomyosarcoma metastatic
  11. TRABECTEDIN [Concomitant]
     Active Substance: TRABECTEDIN
     Indication: Small intestine leiomyosarcoma
     Route: 065
  12. TRABECTEDIN [Concomitant]
     Active Substance: TRABECTEDIN
     Indication: Leiomyosarcoma metastatic

REACTIONS (1)
  - Scleroderma [Recovered/Resolved]
